FAERS Safety Report 20017892 (Version 1)
Quarter: 2021Q4

REPORT INFORMATION
  Report Type: Spontaneous
  Country: IN (occurrence: IN)
  Receive Date: 20211101
  Receipt Date: 20211101
  Transmission Date: 20220303
  Serious: Yes (Other)
  Sender: FDA-Public Use
  Company Number: IN-ENDO PHARMACEUTICALS INC-2021-012455

PATIENT
  Age: 37 Year
  Sex: Female

DRUGS (5)
  1. ACETAZOLAMIDE SODIUM [Suspect]
     Active Substance: ACETAZOLAMIDE SODIUM
     Indication: Intraocular pressure increased
     Dosage: UNK UNKNOWN, UNKNOWN
     Route: 065
  2. UNSPECIFIED INGREDIENT [Suspect]
     Active Substance: UNSPECIFIED INGREDIENT
     Indication: Intraocular pressure increased
     Dosage: UNK UNKNOWN, UNKNOWN
     Route: 065
  3. UNSPECIFIED INGREDIENT [Suspect]
     Active Substance: UNSPECIFIED INGREDIENT
     Indication: Intraocular pressure increased
     Dosage: UNK UNKNOWN, UNKNOWN
     Route: 065
  4. UNSPECIFIED INGREDIENT [Suspect]
     Active Substance: UNSPECIFIED INGREDIENT
     Indication: Intraocular pressure increased
     Dosage: UNK UNKNOWN, UNKNOWN
     Route: 065
  5. TOPIRAMATE [Concomitant]
     Active Substance: TOPIRAMATE
     Indication: Migraine
     Dosage: UNK UNKNOWN, UNKNOWN
     Route: 065

REACTIONS (3)
  - Angle closure glaucoma [Recovered/Resolved]
  - Cross sensitivity reaction [Recovered/Resolved]
  - Myopia [Recovered/Resolved]
